FAERS Safety Report 5028754-4 (Version None)
Quarter: 2006Q2

REPORT INFORMATION
  Report Type: 
  Country: None (occurrence: None)
  Receive Date: 20060619
  Receipt Date: 20041227
  Transmission Date: 20061013
  Serious: No
  Sender: FDA-Public Use
  Company Number: US-BRISTOL-MYERS SQUIBB COMPANY-12807426

PATIENT
  Age: 75 Year
  Sex: Male
  Weight: 88 kg

DRUGS (6)
  1. MITOMYCIN [Suspect]
     Indication: BLADDER CANCER
     Route: 043
     Dates: start: 20041015, end: 20041210
  2. PAXIL [Concomitant]
  3. CARDURA [Concomitant]
  4. PROPRANOLOL [Concomitant]
  5. MIRAPEX [Concomitant]
  6. FLOMAX [Concomitant]

REACTIONS (2)
  - TESTICULAR SWELLING [None]
  - URTICARIA [None]
